FAERS Safety Report 24199489 (Version 1)
Quarter: 2024Q3

REPORT INFORMATION
  Report Type: Spontaneous
  Country: JP (occurrence: JP)
  Receive Date: 20240812
  Receipt Date: 20240812
  Transmission Date: 20241016
  Serious: Yes (Other)
  Sender: ASTELLAS
  Company Number: JP-ASTELLAS-2024JP005866

PATIENT
  Age: 83 Year
  Sex: Female

DRUGS (3)
  1. MIRABEGRON [Suspect]
     Active Substance: MIRABEGRON
     Indication: Product used for unknown indication
     Dosage: UNK UNK, UNKNOWN FREQ.
     Route: 048
  2. CIFENLINE [Concomitant]
     Active Substance: CIFENLINE
     Indication: Hypertrophic cardiomyopathy
     Dosage: UNK UNK, UNKNOWN FREQ.
     Route: 048
  3. CIFENLINE [Concomitant]
     Active Substance: CIFENLINE
     Dosage: UNK UNK, UNKNOWN FREQ.
     Route: 048

REACTIONS (3)
  - Hypertrophic cardiomyopathy [Unknown]
  - Palpitations [Unknown]
  - Contraindicated product prescribed [Unknown]
